FAERS Safety Report 21293220 (Version 9)
Quarter: 2023Q1

REPORT INFORMATION
  Report Type: Report from Study
  Country: US (occurrence: US)
  Receive Date: 20220905
  Receipt Date: 20230316
  Transmission Date: 20230417
  Serious: Yes (Other)
  Sender: FDA-Public Use
  Company Number: US-NOVARTISTESTPH-NVSC2022US196135

PATIENT
  Age: 17 Year
  Sex: Female
  Weight: 56.3 kg

DRUGS (2)
  1. VIJOICE [Suspect]
     Active Substance: ALPELISIB
     Indication: PIK3CA related overgrowth spectrum
     Dosage: 250 MG, QD
     Route: 048
     Dates: start: 202003
  2. VIJOICE [Suspect]
     Active Substance: ALPELISIB
     Dosage: 100 MG
     Route: 048

REACTIONS (25)
  - Extremity contracture [Unknown]
  - Pneumothorax [Unknown]
  - Angina pectoris [Unknown]
  - Swelling [Unknown]
  - Cardiac disorder [Not Recovered/Not Resolved]
  - Arterial disorder [Unknown]
  - Skin striae [Not Recovered/Not Resolved]
  - Spinal pain [Unknown]
  - Back pain [Not Recovered/Not Resolved]
  - Neck pain [Unknown]
  - Pain in extremity [Unknown]
  - Pain [Unknown]
  - Blood disorder [Recovering/Resolving]
  - Feeling abnormal [Unknown]
  - Bruxism [Unknown]
  - Tooth injury [Recovered/Resolved]
  - Fatigue [Unknown]
  - Eye swelling [Unknown]
  - Tenderness [Unknown]
  - Eating disorder [Unknown]
  - Diarrhoea [Unknown]
  - Product dose omission issue [Unknown]
  - Expired product administered [Unknown]
  - Incorrect dose administered [Unknown]
  - Product use issue [Unknown]

NARRATIVE: CASE EVENT DATE: 20200301
